FAERS Safety Report 10565779 (Version 2)
Quarter: 2014Q4

REPORT INFORMATION
  Report Type: Spontaneous
  Country: US (occurrence: US)
  Receive Date: 20141105
  Receipt Date: 20141113
  Transmission Date: 20150529
  Serious: Yes (Death)
  Sender: FDA-Public Use
  Company Number: US-MERCK-1410USA016515

PATIENT
  Age: 72 Year
  Sex: Female

DRUGS (1)
  1. NOXAFIL [Suspect]
     Active Substance: POSACONAZOLE
     Dosage: 300 MG, UNSPECIFIED
     Route: 048

REACTIONS (1)
  - General symptom [Fatal]

NARRATIVE: CASE EVENT DATE: 20141021
